FAERS Safety Report 13322251 (Version 1)
Quarter: 2017Q1

REPORT INFORMATION
  Report Type: Spontaneous
  Country: US (occurrence: US)
  Receive Date: 20170309
  Receipt Date: 20170309
  Transmission Date: 20170428
  Serious: No
  Sender: FDA-Public Use
  Company Number: US-PFIZER INC-2017096170

PATIENT
  Sex: Female

DRUGS (1)
  1. XELJANZ XR [Suspect]
     Active Substance: TOFACITINIB CITRATE
     Dosage: 11 MG, UNK

REACTIONS (11)
  - Fatigue [Unknown]
  - Myalgia [Unknown]
  - Musculoskeletal stiffness [Unknown]
  - Neck pain [Unknown]
  - Arthralgia [Unknown]
  - Mobility decreased [Unknown]
  - Back pain [Unknown]
  - Joint stiffness [Unknown]
  - Joint swelling [Unknown]
  - Muscle atrophy [Unknown]
  - Synovitis [Unknown]
